FAERS Safety Report 13940231 (Version 1)
Quarter: 2017Q3

REPORT INFORMATION
  Report Type: Spontaneous
  Country: US (occurrence: None)
  Receive Date: 20170906
  Receipt Date: 20170906
  Transmission Date: 20171127
  Serious: Yes (Other)
  Sender: FDA-Public Use
  Company Number: None

PATIENT
  Age: 35 Year
  Sex: Female
  Weight: 65.32 kg

DRUGS (5)
  1. LATUDA [Suspect]
     Active Substance: LURASIDONE HYDROCHLORIDE
     Indication: PRODUCT USED FOR UNKNOWN INDICATION
     Dosage: (1 TABLET)  30 TABLETS
     Route: 048
     Dates: start: 201609
  2. PRENATAL PLUS MULTIVITAMIN PLUS DHA MINICAPS [Concomitant]
     Active Substance: ASCORBIC ACID\CALCIUM CARBONATE\CHOLECALCIFEROL\CUPRIC OXIDE\CYANOCOBALAMIN\FERROUS FUMARATE\FISH OIL\FOLIC ACID\NIACINAMIDE\PYRIDOXINE\RIBOFLAVIN\THIAMINE MONONITRATE\TOCOPHEROL\VITAMIN A\ZINC OXIDE
  3. LATUDA [Concomitant]
     Active Substance: LURASIDONE HYDROCHLORIDE
  4. TYLENOL [Concomitant]
     Active Substance: ACETAMINOPHEN
  5. JUNEL FE 1/20 [Concomitant]
     Active Substance: ETHINYL ESTRADIOL\NORETHINDRONE ACETATE

REACTIONS (5)
  - Sedation [None]
  - Somnolence [None]
  - Dizziness [None]
  - Nausea [None]
  - Loss of personal independence in daily activities [None]

NARRATIVE: CASE EVENT DATE: 201705
